FAERS Safety Report 8269971-X (Version None)
Quarter: 2012Q2

REPORT INFORMATION
  Report Type: 
  Country: None (occurrence: None)
  Receive Date: 20120410
  Receipt Date: 20120402
  Transmission Date: 20120825
  Serious: No
  Sender: FDA-Public Use
  Company Number: US-PFIZER INC-2012083471

PATIENT
  Sex: Female
  Weight: 77.551 kg

DRUGS (10)
  1. BENAZEPRIL [Concomitant]
     Indication: HYPERTENSION
     Dosage: UNK
  2. FLUOXETINE [Concomitant]
     Indication: ANXIETY
  3. NEURONTIN [Suspect]
     Indication: NERVE INJURY
     Dosage: UNK
  4. GABAPENTIN [Suspect]
     Indication: PARAESTHESIA
     Dosage: 300 MG, 2X/DAY
     Route: 048
     Dates: start: 20120127, end: 20120201
  5. FLUOXETINE [Concomitant]
     Indication: DEPRESSION
     Dosage: 20 MG, 1X/DAY
  6. LYRICA [Suspect]
     Indication: NEURALGIA
     Dosage: 75 MG, 2X/DAY
     Route: 048
     Dates: start: 20120321, end: 20120328
  7. VITAMIN B COMPLEX CAP [Concomitant]
     Dosage: UNK
  8. GABAPENTIN [Suspect]
     Indication: NEURALGIA
  9. AMLODIPINE [Concomitant]
     Indication: HYPERTENSION
     Dosage: UNK
  10. LIPOIC ACID [Concomitant]
     Dosage: UNK

REACTIONS (1)
  - DRUG INEFFECTIVE [None]
